FAERS Safety Report 6409220-8 (Version None)
Quarter: 2009Q4

REPORT INFORMATION
  Report Type: 
  Country: None (occurrence: None)
  Receive Date: 20091021
  Receipt Date: 20091013
  Transmission Date: 20100525
  Serious: Yes (Death, Other)
  Sender: FDA-Public Use
  Company Number: GB-AVENTIS-200921435GDDC

PATIENT

DRUGS (2)
  1. GLIBENCLAMIDE [Suspect]
     Indication: TYPE 2 DIABETES MELLITUS
     Route: 048
  2. METFORMIN [Suspect]
     Indication: TYPE 2 DIABETES MELLITUS
     Dosage: DOSE: 500-2500 MG, ONCE OR TWICE DAILY
     Route: 048

REACTIONS (2)
  - HYPOGLYCAEMIA [None]
  - SUDDEN CARDIAC DEATH [None]
